FAERS Safety Report 4519843-9 (Version None)
Quarter: 2004Q4

REPORT INFORMATION
  Report Type: 
  Country: None (occurrence: None)
  Receive Date: 20041207
  Receipt Date: 20041123
  Transmission Date: 20050328
  Serious: Yes (Other)
  Sender: FDA-Public Use
  Company Number: FR-JNJFOC-20041106083

PATIENT
  Sex: Male
  Weight: 1.68 kg

DRUGS (1)
  1. EPITOMAX [Suspect]
     Indication: UNEVALUABLE EVENT
     Route: 015
     Dates: start: 20030701, end: 20040302

REACTIONS (5)
  - CAESAREAN SECTION [None]
  - DRUG EXPOSURE DURING PREGNANCY [None]
  - FOETAL GROWTH RETARDATION [None]
  - PREMATURE LABOUR [None]
  - SMALL FOR DATES BABY [None]
